FAERS Safety Report 5867355-2 (Version None)
Quarter: 2008Q3

REPORT INFORMATION
  Report Type: 
  Country: None (occurrence: None)
  Receive Date: 20080902
  Receipt Date: 20080821
  Transmission Date: 20090109
  Serious: Yes (Other)
  Sender: FDA-Public Use
  Company Number: PHEH2007US10293

PATIENT
  Age: 50 Year
  Sex: Male

DRUGS (12)
  1. PROLEUKIN [Suspect]
     Dosage: 600,000 IU/KG/DOSE
     Route: 042
  2. MOXIFLOXACIN HCL [Concomitant]
     Dosage: 400 MG DAILY
  3. METOPROLOL TARTRATE [Concomitant]
     Dosage: 50 MG, BID
  4. AMLODIPINE [Concomitant]
     Dosage: 10 MG, QD
  5. LEVOTHYROXINE [Concomitant]
     Dosage: 25 UG, QD
  6. AMIODARONE [Concomitant]
     Dosage: 200 MG, QD
  7. DOLASETRON [Concomitant]
     Indication: NAUSEA
     Dosage: 100 MG
     Route: 048
  8. RANITIDINE [Concomitant]
     Dosage: 150 MG, BID
     Route: 048
  9. ACETAMINOPHEN [Concomitant]
     Indication: PYREXIA
     Dosage: 650 MG, Q4H
     Route: 048
  10. ACETAMINOPHEN [Concomitant]
     Indication: MYALGIA
  11. NAPROXEN [Concomitant]
     Indication: PYREXIA
     Dosage: 375 MG, BID
     Route: 048
  12. NAPROXEN [Concomitant]
     Indication: MYALGIA

REACTIONS (11)
  - BLOOD CREATININE INCREASED [None]
  - BODY TEMPERATURE INCREASED [None]
  - BUNDLE BRANCH BLOCK LEFT [None]
  - FLUSHING [None]
  - HYPOTENSION [None]
  - MALAISE [None]
  - NAUSEA [None]
  - SINUS TACHYCARDIA [None]
  - TACHYCARDIA [None]
  - URINE OUTPUT DECREASED [None]
  - WHITE BLOOD CELL COUNT INCREASED [None]
